FAERS Safety Report 5108502-X (Version None)
Quarter: 2006Q3

REPORT INFORMATION
  Report Type: 
  Country: None (occurrence: None)
  Receive Date: 20060913
  Receipt Date: 20060906
  Transmission Date: 20061208
  Serious: Yes (Hospitalization)
  Sender: FDA-Public Use
  Company Number: GBWYE635818MAY06

PATIENT
  Age: 68 Year
  Sex: Male

DRUGS (10)
  1. EFFEXOR XR [Suspect]
     Indication: DEPRESSION
     Dosage: 150 MG 1X PER 1 DAY
     Route: 048
     Dates: start: 20060329
  2. AMLODIPINE [Concomitant]
  3. MEBEVERINE (MEBEVERINE) [Concomitant]
  4. LISINOPRIL [Concomitant]
  5. FUROSEMIDE [Concomitant]
  6. LANSOPRAZOLE [Concomitant]
  7. LATANOPROST [Concomitant]
  8. SIMVASTATIN [Concomitant]
  9. DORZOLAMIDE (DORZOLAMIDE) [Concomitant]
  10. CO-DANTHRUSATE (DANTRON/DOCUSATE SODIUM) [Concomitant]

REACTIONS (3)
  - DYSARTHRIA [None]
  - HYPONATRAEMIA [None]
  - SOMNOLENCE [None]
